FAERS Safety Report 23841081 (Version 2)
Quarter: 2024Q2

REPORT INFORMATION
  Report Type: Other
  Country: AU (occurrence: None)
  Receive Date: 20240510
  Receipt Date: 20240604
  Transmission Date: 20240715
  Serious: Yes (Death)
  Sender: FDA-Public Use
  Company Number: AU-ROCHE-3559416

PATIENT
  Sex: Female

DRUGS (1)
  1. OCREVUS [Suspect]
     Active Substance: OCRELIZUMAB
     Indication: Relapsing-remitting multiple sclerosis
     Route: 041
     Dates: start: 20190515

REACTIONS (5)
  - Haemophilus infection [Fatal]
  - Ear infection [Fatal]
  - Ear pain [Fatal]
  - Brain abscess [Fatal]
  - Mastoiditis [Unknown]
